FAERS Safety Report 6194059-1 (Version None)
Quarter: 2009Q2

REPORT INFORMATION
  Report Type: 
  Country: None (occurrence: None)
  Receive Date: 20090518
  Receipt Date: 20090506
  Transmission Date: 20091009
  Serious: Yes (Life-Threatening)
  Sender: FDA-Public Use
  Company Number: EE-PFIZER INC-2009214511

PATIENT
  Age: 73 Year

DRUGS (2)
  1. SERTRALINE HCL [Suspect]
  2. RUPATADINE [Suspect]

REACTIONS (3)
  - DRUG INTERACTION [None]
  - SYNCOPE [None]
  - TORSADE DE POINTES [None]
